FAERS Safety Report 24829508 (Version 1)
Quarter: 2025Q1

REPORT INFORMATION
  Report Type: Spontaneous
  Country: FR (occurrence: FR)
  Receive Date: 20250110
  Receipt Date: 20250110
  Transmission Date: 20250408
  Serious: Yes (Other)
  Sender: ALKEM
  Company Number: FR-ALKEM LABORATORIES LIMITED-FR-ALKEM-2024-12754

PATIENT
  Age: 50 Year
  Sex: Female

DRUGS (4)
  1. CAPECITABINE [Suspect]
     Active Substance: CAPECITABINE
     Indication: Breast cancer
     Route: 065
  2. BEVACIZUMAB [Suspect]
     Active Substance: BEVACIZUMAB
     Indication: Breast cancer
     Route: 065
  3. BEVACIZUMAB [Suspect]
     Active Substance: BEVACIZUMAB
     Dosage: UNK, ONCE WEEKLY
     Route: 065
  4. ROSUVASTATIN [Concomitant]
     Active Substance: ROSUVASTATIN
     Indication: Hyperlipidaemia
     Route: 065

REACTIONS (3)
  - Hypertriglyceridaemia [Recovered/Resolved]
  - Breast cancer [Unknown]
  - Disease progression [Unknown]

NARRATIVE: CASE EVENT DATE: 20091201
